FAERS Safety Report 10881679 (Version 1)
Quarter: 2015Q1

REPORT INFORMATION
  Report Type: Spontaneous
  Country: US (occurrence: None)
  Receive Date: 20150226
  Receipt Date: 20150226
  Transmission Date: 20150721
  Serious: Yes (Life-Threatening, Other)
  Sender: FDA-Public Use
  Company Number: None

PATIENT
  Age: 72 Year
  Sex: Female
  Weight: 123 kg

DRUGS (11)
  1. CLONEZEPIM [Concomitant]
  2. ALBUTEROL. [Concomitant]
     Active Substance: ALBUTEROL
  3. LISLINOPRIL [Concomitant]
  4. SYMBALTA [Concomitant]
  5. OXYCODONE [Concomitant]
     Active Substance: OXYCODONE
  6. PRISTIG [Concomitant]
  7. AMLODIPINE [Concomitant]
     Active Substance: AMLODIPINE BESYLATE
  8. ZIPVEX [Concomitant]
  9. BRINTELLIX [Suspect]
     Active Substance: VORTIOXETINE HYDROBROMIDE
     Indication: DEPRESSION
     Route: 048
     Dates: start: 201412
  10. METOPROLOL [Concomitant]
     Active Substance: METOPROLOL
  11. OXYUTYNIV [Concomitant]

REACTIONS (2)
  - Aggression [None]
  - Hostility [None]

NARRATIVE: CASE EVENT DATE: 20141214
